FAERS Safety Report 5755074-2 (Version None)
Quarter: 2008Q2

REPORT INFORMATION
  Report Type: 
  Country: None (occurrence: None)
  Receive Date: 20080528
  Receipt Date: 20080528
  Transmission Date: 20081010
  Serious: Yes (Life-Threatening, Hospitalization, Other)
  Sender: FDA-Public Use
  Company Number: None

PATIENT
  Sex: Female
  Weight: 74.8435 kg

DRUGS (1)
  1. DIGOXIN [Suspect]
     Indication: CARDIAC OPERATION
     Dosage: TABLET DAILY
     Dates: start: 19970727, end: 20080515

REACTIONS (16)
  - ACCIDENTAL EXPOSURE [None]
  - CHROMATOPSIA [None]
  - CONFUSIONAL STATE [None]
  - COUGH [None]
  - DISORIENTATION [None]
  - FALL [None]
  - GLAUCOMA [None]
  - HAND FRACTURE [None]
  - HEART VALVE INCOMPETENCE [None]
  - NAIL DISORDER [None]
  - POST PROCEDURAL COMPLICATION [None]
  - SMOKING CESSATION THERAPY [None]
  - UPPER LIMB FRACTURE [None]
  - VISUAL ACUITY REDUCED [None]
  - VISUAL DISTURBANCE [None]
  - WRIST FRACTURE [None]
